FAERS Safety Report 21372375 (Version 4)
Quarter: 2023Q1

REPORT INFORMATION
  Report Type: Spontaneous
  Country: CA (occurrence: CA)
  Receive Date: 20220924
  Receipt Date: 20230324
  Transmission Date: 20230417
  Serious: Yes (Other)
  Sender: FDA-Public Use
  Company Number: CA-CELLTRION INC.-2022CA015495

PATIENT

DRUGS (5)
  1. INFLECTRA [Suspect]
     Active Substance: INFLIXIMAB-DYYB
     Indication: Colitis ulcerative
     Dosage: 300 MG,INDUCTION AT Q 0,2,6 THEN EVERY 8 WEEKS
     Route: 042
     Dates: start: 20220803
  2. INFLECTRA [Suspect]
     Active Substance: INFLIXIMAB-DYYB
     Dosage: 300 MG,INDUCTION AT Q 0,2,6 THEN EVERY 8 WEEKS
     Route: 042
     Dates: start: 20220914
  3. INFLECTRA [Suspect]
     Active Substance: INFLIXIMAB-DYYB
     Dosage: 300 MG,INDUCTION AT Q 0,2,6 THEN EVERY 8 WEEKS
     Route: 042
     Dates: start: 20221123
  4. INFLECTRA [Suspect]
     Active Substance: INFLIXIMAB-DYYB
     Dosage: 300 MG,INDUCTION AT Q 0,2,6 THEN EVERY 8 WEEKS
     Route: 042
     Dates: start: 20230118
  5. INFLECTRA [Suspect]
     Active Substance: INFLIXIMAB-DYYB
     Dosage: 300 MG,INDUCTION AT Q 0,2,6 THEN EVERY 8 WEEKS (Q7 WEEKS AND 6 DAYS)
     Route: 042
     Dates: start: 20230315

REACTIONS (4)
  - Condition aggravated [Recovering/Resolving]
  - Inappropriate schedule of product administration [Unknown]
  - Off label use [Unknown]
  - Intentional product use issue [Unknown]

NARRATIVE: CASE EVENT DATE: 20220914
